FAERS Safety Report 5533916-3 (Version None)
Quarter: 2007Q4

REPORT INFORMATION
  Report Type: 
  Country: None (occurrence: None)
  Receive Date: 20071129
  Receipt Date: 20071126
  Transmission Date: 20080405
  Serious: Yes (Life-Threatening)
  Sender: FDA-Public Use
  Company Number: TCI2007A05608

PATIENT
  Age: 75 Year
  Sex: Male

DRUGS (3)
  1. LEUPROLIDE ACETATE [Suspect]
     Indication: PROSTATE CANCER STAGE II
     Dosage: 11.25 MG (11.25 MG, 1 IN 12 WK)
     Route: 058
     Dates: start: 20060626, end: 20061211
  2. CASODEX [Concomitant]
  3. HARNAL D (TAMSULOSIN HYDROCHLORTIDE) [Concomitant]

REACTIONS (1)
  - PANCREATIC CARCINOMA [None]
